FAERS Safety Report 16179816 (Version 10)
Quarter: 2020Q3

REPORT INFORMATION
  Report Type: Spontaneous
  Country: US (occurrence: US)
  Receive Date: 20190410
  Receipt Date: 20200929
  Transmission Date: 20201102
  Serious: Yes (Hospitalization, Other)
  Sender: FDA-Public Use
  Company Number: US-PFIZER INC-2019147195

PATIENT
  Age: 66 Year
  Sex: Male
  Weight: 63.5 kg

DRUGS (5)
  1. INLYTA [Suspect]
     Active Substance: AXITINIB
     Dosage: 4 MG, 2X/DAY
     Route: 048
  2. INLYTA [Suspect]
     Active Substance: AXITINIB
     Dosage: UNK
  3. INLYTA [Suspect]
     Active Substance: AXITINIB
     Indication: METASTATIC RENAL CELL CARCINOMA
     Dosage: 7 MG (ONE 5 MG AND TWO 1 MG), 2X/DAY
     Route: 048
  4. INLYTA [Suspect]
     Active Substance: AXITINIB
     Dosage: 5 MG, 2X/DAY
     Route: 048
     Dates: start: 201901, end: 20200612
  5. INLYTA [Suspect]
     Active Substance: AXITINIB
     Dosage: 7 MG, DAILY (4 MG AM AND 3 MG PM)
     Route: 048

REACTIONS (7)
  - Haemorrhage urinary tract [Recovered/Resolved]
  - Diarrhoea [Unknown]
  - Neoplasm progression [Unknown]
  - Haematuria [Recovered/Resolved]
  - Chromaturia [Recovered/Resolved]
  - Transient ischaemic attack [Unknown]
  - Blood pressure increased [Unknown]

NARRATIVE: CASE EVENT DATE: 202001
